FAERS Safety Report 21328522 (Version 1)
Quarter: 2022Q3

REPORT INFORMATION
  Report Type: Spontaneous
  Country: US (occurrence: US)
  Receive Date: 20220913
  Receipt Date: 20220913
  Transmission Date: 20221026
  Serious: Yes (Hospitalization, Disabling, Other)
  Sender: FDA-Public Use
  Company Number: US-AMGEN-USASP2022156007

PATIENT
  Age: 67 Year
  Sex: Female

DRUGS (1)
  1. EVENITY [Suspect]
     Active Substance: ROMOSOZUMAB-AQQG
     Indication: Osteoporosis
     Dosage: 50 MILLIGRAM, QMO
     Route: 058
     Dates: start: 202206

REACTIONS (9)
  - Heart rate decreased [Unknown]
  - Hypotension [Unknown]
  - Palpitations [Unknown]
  - Dizziness [Unknown]
  - Adverse event [Unknown]
  - Loss of consciousness [Unknown]
  - Dyspnoea [Unknown]
  - Off label use [Unknown]
  - Alopecia [Unknown]

NARRATIVE: CASE EVENT DATE: 20220101
